FAERS Safety Report 18235085 (Version 2)
Quarter: 2020Q4

REPORT INFORMATION
  Report Type: Spontaneous
  Country: GB (occurrence: GB)
  Receive Date: 20200905
  Receipt Date: 20201209
  Transmission Date: 20210113
  Serious: Yes (Hospitalization, Other)
  Sender: FDA-Public Use
  Company Number: GB-ACCORD-198773

PATIENT
  Age: 57 Year
  Sex: Female
  Weight: 79.5 kg

DRUGS (19)
  1. LANSOPRAZOLE. [Suspect]
     Active Substance: LANSOPRAZOLE
     Indication: PROPHYLAXIS AGAINST GASTROINTESTINAL ULCER
     Dosage: 105 MG
     Route: 048
     Dates: start: 20200628, end: 20200628
  2. MIRTAZAPINE. [Suspect]
     Active Substance: MIRTAZAPINE
     Indication: DEPRESSION
     Dosage: 45 MG, QD
     Route: 048
     Dates: end: 20200628
  3. LANSOPRAZOLE. [Suspect]
     Active Substance: LANSOPRAZOLE
     Indication: PROPHYLAXIS AGAINST GASTROINTESTINAL ULCER
     Dosage: 15 MG, QD
     Route: 048
     Dates: end: 20200628
  4. SALBUTAMOL [Concomitant]
     Active Substance: ALBUTEROL
     Indication: ASTHMA
     Dosage: 1-2 PUFFS QDS/ PRN, INHALER, 100 MICORGRAMS
     Route: 048
     Dates: end: 20200628
  5. ACETYLCYSTEINE. [Concomitant]
     Active Substance: ACETYLCYSTEINE
     Indication: PRODUCT USED FOR UNKNOWN INDICATION
     Dosage: UNK
     Route: 065
  6. CLOZARIL [Suspect]
     Active Substance: CLOZAPINE
     Indication: SCHIZOPHRENIA
     Dosage: 200 MG, BID
     Route: 048
     Dates: start: 2020
  7. PARACETAMOL [Suspect]
     Active Substance: ACETAMINOPHEN
     Indication: ARTHRITIS
     Dosage: 500 MG TO 1 GRAM, QDS, PRN
     Route: 048
     Dates: end: 20200628
  8. CLOZARIL [Suspect]
     Active Substance: CLOZAPINE
     Indication: SCHIZOPHRENIA
     Dosage: 4.2 G, QD
     Route: 048
     Dates: start: 20200628, end: 20200628
  9. NAPROXEN. [Suspect]
     Active Substance: NAPROXEN
     Indication: SCIATICA
     Dosage: 21 G
     Route: 048
     Dates: start: 20200628, end: 20200628
  10. CLOZARIL [Suspect]
     Active Substance: CLOZAPINE
     Indication: SCHIZOPHRENIA
     Dosage: 300 MG, BID
     Route: 048
     Dates: start: 20050118, end: 20200628
  11. NAPROXEN. [Suspect]
     Active Substance: NAPROXEN
     Indication: SCIATICA
     Dosage: 500 MG, BID
     Route: 048
     Dates: end: 20200628
  12. BECLOMETASONE [Concomitant]
     Active Substance: BECLOMETHASONE DIPROPIONATE
     Indication: ASTHMA
     Dosage: 2 PUFFS, BID, INHALER, STRENGTH: 100 MICROGRAMS
     Route: 048
     Dates: end: 20200628
  13. AQUADERM [Concomitant]
     Indication: DRY SKIN
     Dosage: ASD, ASD
     Route: 061
     Dates: end: 20200628
  14. PARACETAMOL [Suspect]
     Active Substance: ACETAMINOPHEN
     Indication: ARTHRITIS
     Dosage: 15 G
     Route: 048
     Dates: start: 20200628, end: 20200628
  15. ADCAL D3 [Concomitant]
     Active Substance: CALCIUM CARBONATE\CHOLECALCIFEROL
     Indication: SUPPLEMENTATION THERAPY
     Dosage: 2 DOSAGE FORM, BID, 750MG/100 UNITS
     Route: 048
     Dates: end: 20200628
  16. HYALURONIC ACID [Concomitant]
     Active Substance: HYALURONIC ACID
     Indication: DRY SKIN
     Dosage: UNK (ASD)
     Route: 061
     Dates: end: 20200628
  17. MIRTAZAPINE. [Suspect]
     Active Substance: MIRTAZAPINE
     Indication: DEPRESSION
     Dosage: 315 MG
     Route: 048
     Dates: start: 20200628, end: 20200628
  18. AMLODIPINE [Suspect]
     Active Substance: AMLODIPINE BESYLATE
     Indication: HYPERTENSION
     Dosage: 5 MG, QD
     Route: 048
     Dates: end: 20200628
  19. AMLODIPINE [Suspect]
     Active Substance: AMLODIPINE BESYLATE
     Indication: HYPERTENSION
     Dosage: 70 MG
     Route: 048
     Dates: start: 20200628, end: 20200628

REACTIONS (3)
  - Overdose [Unknown]
  - Haemorrhage [Unknown]
  - Sinus tachycardia [Unknown]

NARRATIVE: CASE EVENT DATE: 2020
